FAERS Safety Report 5080773-8 (Version None)
Quarter: 2006Q3

REPORT INFORMATION
  Report Type: 
  Country: None (occurrence: None)
  Receive Date: 20060810
  Receipt Date: 20060801
  Transmission Date: 20061208
  Serious: Yes (Death, Other)
  Sender: FDA-Public Use
  Company Number: 2006086166

PATIENT
  Age: 68 Year
  Sex: Male
  Weight: 68 kg

DRUGS (4)
  1. FLUCONAZOLE [Suspect]
     Indication: AGEUSIA
     Dosage: 50 MG (50 MG, DAILY), ORAL
     Route: 048
     Dates: start: 20060706
  2. MESTINON [Suspect]
     Indication: PAIN IN EXTREMITY
     Dosage: 180 MG (3 IN 1 D), ORAL
     Route: 048
     Dates: start: 20060706
  3. COTAREG (HYDROCHLOROTHIAZIDE, VALSARTAN) [Concomitant]
  4. DILTIAZEM HYDROCHLORIDE [Concomitant]

REACTIONS (2)
  - CEREBROVASCULAR ACCIDENT [None]
  - DRUG INTERACTION [None]
